FAERS Safety Report 7523379-0 (Version None)
Quarter: 2011Q2

REPORT INFORMATION
  Report Type: 
  Country: None (occurrence: None)
  Receive Date: 20110603
  Receipt Date: 20110511
  Transmission Date: 20111010
  Serious: Yes (Hospitalization)
  Sender: FDA-Public Use
  Company Number: B0718302A

PATIENT
  Sex: Male

DRUGS (11)
  1. PRAVASTATIN SODIUM [Concomitant]
     Route: 065
  2. AMLODIPINE [Concomitant]
     Route: 065
  3. ARIXTRA [Suspect]
     Indication: ERYSIPELAS
     Dosage: 7.5MG PER DAY
     Dates: start: 20110401, end: 20110406
  4. ABACAVIR SULFATE AND LAMIVUDINE [Concomitant]
     Indication: HIV INFECTION
     Route: 065
  5. PREDNISONE [Concomitant]
     Route: 065
  6. BISOPROLOL FUMARATE [Concomitant]
     Route: 065
  7. ISENTRESS [Concomitant]
     Indication: HIV INFECTION
     Route: 065
  8. ATACAND [Concomitant]
     Route: 065
  9. CELLCEPT [Concomitant]
     Route: 065
  10. BACTRIM [Concomitant]
     Route: 065
  11. PROGRAF [Concomitant]
     Route: 065

REACTIONS (3)
  - PAIN IN EXTREMITY [None]
  - OVERDOSE [None]
  - HAEMATOMA [None]
